FAERS Safety Report 12681814 (Version 1)
Quarter: 2016Q3

REPORT INFORMATION
  Report Type: Report from Study
  Country: US (occurrence: US)
  Receive Date: 20160824
  Receipt Date: 20160824
  Transmission Date: 20161109
  Serious: Yes (Hospitalization)
  Sender: FDA-Public Use
  Company Number: US-ASTRAZENECA-2016SE89192

PATIENT
  Age: 26635 Day
  Sex: Male
  Weight: 83.5 kg

DRUGS (2)
  1. FOUR OTHER MEDICATIONS [Concomitant]
  2. BRILINTA [Suspect]
     Active Substance: TICAGRELOR
     Indication: STENT PLACEMENT
     Route: 048
     Dates: start: 201603

REACTIONS (4)
  - Chest pain [Unknown]
  - Choking [Unknown]
  - Pain in jaw [Unknown]
  - Dyspnoea [Unknown]

NARRATIVE: CASE EVENT DATE: 20160816
